FAERS Safety Report 25968407 (Version 2)
Quarter: 2025Q4

REPORT INFORMATION
  Report Type: Spontaneous
  Country: EU (occurrence: EU)
  Receive Date: 20251028
  Receipt Date: 20251031
  Transmission Date: 20260117
  Serious: Yes (Other)
  Sender: RANBAXY
  Company Number: EU-SANDOZ-SDZ2025IT021638

PATIENT
  Age: 55 Year
  Sex: Male
  Weight: 80 kg

DRUGS (10)
  1. FENOFIBRATE [Interacting]
     Active Substance: FENOFIBRATE
     Indication: Hyperlipidaemia
     Dosage: 145 MILLIGRAM, DAILY, 1 CPR/DAY
     Route: 048
     Dates: start: 2016, end: 20241010
  2. FENOFIBRATE [Interacting]
     Active Substance: FENOFIBRATE
     Indication: Hypercholesterolaemia
  3. VALSARTAN [Suspect]
     Active Substance: VALSARTAN
     Indication: Hyperlipidaemia
     Dosage: 80 MILLIGRAM, DAILY, 1 TABLET/DAY
     Route: 065
  4. PANTOPRAZOLE [Suspect]
     Active Substance: PANTOPRAZOLE
     Indication: Hyperlipidaemia
     Dosage: 20 MILLIGRAM, DAILY, 1  CPR/DAY
     Route: 065
  5. EZETIMIBE [Interacting]
     Active Substance: EZETIMIBE
     Indication: Hyperlipidaemia
     Dosage: 10 MILLIGRAM, QD
     Route: 065
  6. BISOPROLOL [Suspect]
     Active Substance: BISOPROLOL
     Indication: Hyperlipidaemia
     Dosage: 1.25 MILLIGRAM, 2 TABLETS IN THE MORNING + 1 TABLET IN THE EVENING
     Route: 065
  7. BEMPEDOIC ACID [Suspect]
     Active Substance: BEMPEDOIC ACID
     Indication: Hypercholesterolaemia
     Dosage: 180 MILLIGRAM, DAILY, 1 CPR/DAY
     Route: 048
     Dates: start: 20230501
  8. EVOLOCUMAB [Suspect]
     Active Substance: EVOLOCUMAB
     Indication: Hyperlipidaemia
     Dosage: 420 MILLIGRAM, EVERY 28 DAYS (EVERY 4 WEEKS), 140 MG 3 SC VIALS
     Route: 058
  9. RANOLAZINE [Suspect]
     Active Substance: RANOLAZINE
     Indication: Hyperlipidaemia
     Dosage: 750 MILLIGRAM, 1/WEEK, 375 MG, BIWEEKLY
     Route: 065
  10. LEVOTHYROXINE [Suspect]
     Active Substance: LEVOTHYROXINE
     Indication: Hyperlipidaemia
     Dosage: 175 MCG, DAILY, 1 TABLET/DAY
     Route: 065

REACTIONS (2)
  - High density lipoprotein decreased [Recovering/Resolving]
  - Drug interaction [Unknown]

NARRATIVE: CASE EVENT DATE: 20240905
